FAERS Safety Report 13423829 (Version 1)
Quarter: 2017Q2

REPORT INFORMATION
  Report Type: Spontaneous
  Country: AU (occurrence: AU)
  Receive Date: 20170410
  Receipt Date: 20170410
  Transmission Date: 20170830
  Serious: Yes (Hospitalization, Other)
  Sender: FDA-Public Use
  Company Number: AU-BAYER-2017-059734

PATIENT
  Age: 58 Year
  Sex: Female

DRUGS (1)
  1. BETAFERON [Suspect]
     Active Substance: INTERFERON BETA-1B
     Indication: MULTIPLE SCLEROSIS
     Dosage: UNK

REACTIONS (7)
  - Intervertebral disc degeneration [None]
  - Influenza like illness [Recovered/Resolved]
  - Adverse drug reaction [Recovered/Resolved]
  - Multiple sclerosis relapse [None]
  - Kyphosis [None]
  - Multiple sclerosis [Not Recovered/Not Resolved]
  - Injection site reaction [None]
